FAERS Safety Report 6910971-7 (Version None)
Quarter: 2010Q3

REPORT INFORMATION
  Report Type: 
  Country: None (occurrence: None)
  Receive Date: 20100806
  Receipt Date: 20100727
  Transmission Date: 20110219
  Serious: Yes (Death)
  Sender: FDA-Public Use
  Company Number: A0856905A

PATIENT
  Age: 77 Year
  Sex: Male

DRUGS (2)
  1. ARIXTRA [Suspect]
     Indication: BONE OPERATION
     Route: 065
     Dates: start: 20080101, end: 20080101
  2. ASPIRIN [Concomitant]
     Dosage: 325MG PER DAY
     Route: 048

REACTIONS (1)
  - PULMONARY EMBOLISM [None]
